FAERS Safety Report 15272044 (Version 2)
Quarter: 2018Q4

REPORT INFORMATION
  Report Type: Spontaneous
  Country: FR (occurrence: FR)
  Receive Date: 20180813
  Receipt Date: 20181005
  Transmission Date: 20190204
  Serious: Yes (Other)
  Sender: FDA-Public Use
  Company Number: FR-PURDUE PHARMA-GBR-2018-0058223

PATIENT
  Age: 73 Year
  Sex: Male
  Weight: 69 kg

DRUGS (11)
  1. FUNGIZONE [Concomitant]
     Active Substance: AMPHOTERICIN B
  2. TEMESTA                            /00273201/ [Concomitant]
     Active Substance: LORAZEPAM
  3. ESIDREX [Concomitant]
     Active Substance: HYDROCHLOROTHIAZIDE
  4. DIFFU K [Concomitant]
     Active Substance: POTASSIUM CHLORIDE
  5. VANCOMYCINE SANDOZ [Suspect]
     Active Substance: VANCOMYCIN
     Indication: LUNG DISORDER
     Dosage: 2 G, DAILY (STRENGHT 500 MG)
     Route: 042
     Dates: start: 20180305
  6. OXYNORMORO [Suspect]
     Active Substance: OXYCODONE HYDROCHLORIDE
     Indication: PRODUCT USED FOR UNKNOWN INDICATION
     Dosage: 1 DF, Q4H (EVERY FOUR HOURS), STRENGHT 5MG
     Route: 048
     Dates: start: 20180311
  7. DALACINE                           /00166003/ [Suspect]
     Active Substance: CLINDAMYCIN
     Indication: LUNG DISORDER
     Dosage: 6 DF, DAILY (STRENGTH 300 MG)
     Route: 048
     Dates: start: 20180305
  8. MATRIFEN [Suspect]
     Active Substance: FENTANYL
     Indication: PRODUCT USED FOR UNKNOWN INDICATION
     Dosage: 1 DF, Q72H (EVERY 72 HOURS), STRENGHT 25 MCG/HOUR
     Route: 062
     Dates: start: 20180305
  9. ZYLORIC [Concomitant]
     Active Substance: ALLOPURINOL
  10. ERBITUX [Suspect]
     Active Substance: CETUXIMAB
     Indication: NASAL SINUS CANCER
     Dosage: 1 DF, WEEKLY (STRENGHT 5MG/ML)
     Route: 042
     Dates: start: 20180115
  11. METHYLPREDNISOLONE. [Concomitant]
     Active Substance: METHYLPREDNISOLONE

REACTIONS (2)
  - Dermatitis [Recovered/Resolved]
  - Oedema peripheral [Recovered/Resolved]

NARRATIVE: CASE EVENT DATE: 201803
